FAERS Safety Report 7164485-2 (Version None)
Quarter: 2010Q4

REPORT INFORMATION
  Report Type: 
  Country: None (occurrence: None)
  Receive Date: 20101215
  Receipt Date: 20101208
  Transmission Date: 20110411
  Serious: Yes (Hospitalization)
  Sender: FDA-Public Use
  Company Number: ES-ABBOTT-10P-144-0690444-00

PATIENT
  Age: 43 Year
  Sex: Male

DRUGS (2)
  1. DEPAKENE [Suspect]
     Indication: EPILEPSY
     Dosage: DAILY
     Route: 048
     Dates: start: 20071025
  2. REMICADE [Suspect]
     Indication: COLITIS ULCERATIVE
     Dates: start: 20090714

REACTIONS (1)
  - OEDEMA [None]
